FAERS Safety Report 20804900 (Version 7)
Quarter: 2025Q1

REPORT INFORMATION
  Report Type: Spontaneous
  Country: US (occurrence: US)
  Receive Date: 20220509
  Receipt Date: 20250224
  Transmission Date: 20250408
  Serious: No
  Sender: PFIZER
  Company Number: US-PFIZER INC-2019090288

PATIENT
  Age: 69 Year
  Sex: Female

DRUGS (2)
  1. PREMARIN [Suspect]
     Active Substance: ESTROGENS, CONJUGATED
     Indication: Urinary tract infection
  2. PREMARIN [Suspect]
     Active Substance: ESTROGENS, CONJUGATED
     Dosage: 1 G, 2X/WEEK (APPLY 1 GRAM AT URETHRAL OPENING TWO TIMES EVERY WEEK VIA FINGER TIP METHOD)
     Route: 066

REACTIONS (6)
  - COVID-19 [Unknown]
  - Fatigue [Unknown]
  - Illness [Unknown]
  - Off label use [Unknown]
  - Wrong technique in product usage process [Unknown]
  - Intentional product misuse [Unknown]
